FAERS Safety Report 10602302 (Version 7)
Quarter: 2015Q2

REPORT INFORMATION
  Report Type: Report from Study
  Country: AT (occurrence: AT)
  Receive Date: 20141124
  Receipt Date: 20150604
  Transmission Date: 20150821
  Serious: Yes (Hospitalization)
  Sender: FDA-Public Use
  Company Number: PHHO2014AT015035

PATIENT
  Age: 52 Year
  Sex: Female
  Weight: 110 kg

DRUGS (7)
  1. LISINOPRIL. [Suspect]
     Active Substance: LISINOPRIL
     Indication: HYPERTENSION
     Route: 065
     Dates: start: 20071130
  2. DILATREND [Suspect]
     Active Substance: CARVEDILOL
     Indication: HYPERTENSION
     Route: 065
     Dates: start: 20071130
  3. LISINOCOMP [Concomitant]
     Indication: HYPERTENSION
     Route: 065
     Dates: start: 20071130
  4. CO-DILATREND [Concomitant]
     Indication: HYPERTENSION
     Route: 065
     Dates: start: 20071130
  5. PRAVASTATIN [Concomitant]
     Active Substance: PRAVASTATIN\PRAVASTATIN SODIUM
     Indication: HYPERCHOLESTEROLAEMIA
     Route: 065
     Dates: start: 200601
  6. METFORMIN [Concomitant]
     Active Substance: METFORMIN HYDROCHLORIDE
     Indication: HYPERCHOLESTEROLAEMIA
     Route: 065
     Dates: start: 20100112
  7. GILENYA [Suspect]
     Active Substance: FINGOLIMOD HYDROCHLORIDE
     Indication: MULTIPLE SCLEROSIS
     Dosage: 0.5 MG, QD
     Route: 048
     Dates: start: 20110126

REACTIONS (2)
  - Benign hydatidiform mole [Recovered/Resolved]
  - Maternal exposure during pregnancy [Unknown]

NARRATIVE: CASE EVENT DATE: 20141112
